FAERS Safety Report 4666548-X (Version None)
Quarter: 2005Q2

REPORT INFORMATION
  Report Type: 
  Country: None (occurrence: None)
  Receive Date: 20050519
  Receipt Date: 20050509
  Transmission Date: 20051028
  Serious: Yes (Death)
  Sender: FDA-Public Use
  Company Number: US-SANOFI-SYNTHELABO-D01200503407

PATIENT
  Sex: Female
  Weight: 70.5 kg

DRUGS (11)
  1. OXALIPLATIN [Suspect]
     Indication: GASTROINTESTINAL CANCER METASTATIC
     Route: 042
     Dates: start: 20050420, end: 20050420
  2. OXALIPLATIN [Suspect]
     Indication: BILE DUCT CANCER
     Route: 042
     Dates: start: 20050420, end: 20050420
  3. FLUOROURACIL [Suspect]
     Dosage: 400 MG/M2 IV BOLUS FOLLOWED BY 600 MG/M2 IV CONTINUOUS INFUSION, D1-D2, Q2W
     Route: 042
     Dates: start: 20050420, end: 20050420
  4. LEUCOVORIN CALCIUM [Suspect]
     Route: 042
     Dates: start: 20050420, end: 20050420
  5. COUMADIN [Concomitant]
  6. METOPROLOL [Concomitant]
     Route: 048
  7. AMIODARONE HCL [Concomitant]
     Dosage: 200 MG
     Route: 048
  8. ENALAPRIL MALEATE [Concomitant]
     Dosage: 5 MG
     Route: 048
  9. DIGOXIN [Concomitant]
     Dosage: 0.25 MG
     Route: 048
  10. PEPCID [Concomitant]
     Route: 048
  11. LASIX [Concomitant]
     Dosage: 20 MG
     Route: 048

REACTIONS (10)
  - ACUTE RESPIRATORY DISTRESS SYNDROME [None]
  - CANDIDIASIS [None]
  - CARDIAC ARREST [None]
  - CARDIAC FAILURE [None]
  - CARDIOGENIC SHOCK [None]
  - CULTURE URINE POSITIVE [None]
  - HYPOTENSION [None]
  - INTRACARDIAC THROMBUS [None]
  - NEUTROPENIA [None]
  - SUBDURAL HAEMATOMA [None]
